FAERS Safety Report 7801481-3 (Version None)
Quarter: 2011Q4

REPORT INFORMATION
  Report Type: 
  Country: None (occurrence: None)
  Receive Date: 20111005
  Receipt Date: 20110927
  Transmission Date: 20120403
  Serious: Yes (Other)
  Sender: FDA-Public Use
  Company Number: 1000024244

PATIENT
  Age: 63 Year
  Sex: Female

DRUGS (5)
  1. LEXAPRO [Suspect]
     Indication: DEPRESSION
     Dosage: 10 MG (10 MG,1 IN 1 D),ORAL
     Route: 048
     Dates: start: 20050101
  2. DEPLIN (CALCIUM LEVOMEFOLATE) (CALCIUM LEVOMEFOLATE) [Concomitant]
  3. LEXAPRO [Suspect]
     Indication: DEPRESSION
     Dosage: 20 MG (20 MG,1 IN 1 D),ORAL ; 10 MG (10 MG,1 IN 1 D),ORAL
     Route: 048
     Dates: start: 20110801
  4. LEXAPRO [Suspect]
     Indication: DEPRESSION
     Dosage: 20 MG (20 MG,1 IN 1 D),ORAL ; 10 MG (10 MG,1 IN 1 D),ORAL
     Route: 048
     Dates: end: 20110801
  5. FLUCONAZOLE [Suspect]
     Indication: FUNGAL INFECTION
     Dosage: DAILY (1 IN 1 D),ORAL
     Route: 048
     Dates: start: 20110812, end: 20110901

REACTIONS (6)
  - FATIGUE [None]
  - MANIA [None]
  - DEPRESSION [None]
  - FUNGAL INFECTION [None]
  - PALPITATIONS [None]
  - DRUG INTERACTION [None]
